FAERS Safety Report 6054352-X (Version None)
Quarter: 2009Q1

REPORT INFORMATION
  Report Type: 
  Country: None (occurrence: None)
  Receive Date: 20090127
  Receipt Date: 20090115
  Transmission Date: 20090719
  Serious: Yes (Other)
  Sender: FDA-Public Use
  Company Number: ES-SANOFI-SYNTHELABO-A01200900601

PATIENT
  Sex: Male

DRUGS (2)
  1. ANTIANDROGENS [Concomitant]
     Indication: PROSTATE CANCER
  2. ELIGARD [Suspect]
     Indication: PROSTATE CANCER
     Dosage: ONCE EVERY 6 MONTHS 45 MG
     Route: 058

REACTIONS (1)
  - PROSTATIC SPECIFIC ANTIGEN INCREASED [None]
